FAERS Safety Report 4473631-0 (Version None)
Quarter: 2004Q4

REPORT INFORMATION
  Report Type: 
  Country: None (occurrence: None)
  Receive Date: 20040909
  Receipt Date: 20040301
  Transmission Date: 20050328
  Serious: Yes (Hospitalization)
  Sender: FDA-Public Use
  Company Number: F03200400017

PATIENT
  Age: 38 Year
  Sex: Male
  Weight: 83.9154 kg

DRUGS (14)
  1. ELOXATIN [Suspect]
     Indication: COLON CANCER
     Dosage: 85 MG/M2 Q2W - INTRAVENOUS NOS
     Route: 042
     Dates: start: 20031211, end: 20031211
  2. AVASTIN [Suspect]
     Indication: COLON CANCER
     Dosage: 10 MG/KG Q2W
     Dates: start: 20031211, end: 20031211
  3. XELODA [Suspect]
     Indication: COLON CANCER
     Dosage: 1000 MG/M2 BID
     Dates: end: 20031216
  4. FLUOXETINE HYDROCHLORIDE [Concomitant]
  5. PANTOPRAZOLE SODIUM [Concomitant]
  6. OXYCONTIN [Concomitant]
  7. PROCHLORPERAZINE EDISYLATE [Concomitant]
  8. MULTI-VITAMINS [Concomitant]
  9. LOPERAMIDE HYDROCHLORIDE [Concomitant]
  10. LOMOTIL [Concomitant]
  11. IRON [Concomitant]
  12. WARFARIN SODIUM [Concomitant]
  13. ONDANSETRON HCL [Concomitant]
  14. PERCOCET [Concomitant]

REACTIONS (2)
  - DEHYDRATION [None]
  - DIARRHOEA [None]
